FAERS Safety Report 5057746-4 (Version None)
Quarter: 2006Q2

REPORT INFORMATION
  Report Type: 
  Country: None (occurrence: None)
  Receive Date: 20060627
  Receipt Date: 20060504
  Transmission Date: 20061013
  Serious: No
  Sender: FDA-Public Use
  Company Number: SP00852

PATIENT

DRUGS (1)
  1. XIFAXAN [Suspect]
     Indication: CROHN'S DISEASE

REACTIONS (1)
  - DIARRHOEA [None]
